FAERS Safety Report 18276280 (Version 1)
Quarter: 2020Q3

REPORT INFORMATION
  Report Type: Spontaneous
  Country: US (occurrence: US)
  Receive Date: 20200917
  Receipt Date: 20200917
  Transmission Date: 20201103
  Serious: Yes (Other)
  Sender: FDA-Public Use
  Company Number: US-STRIDES ARCOLAB LIMITED-2019SP006898

PATIENT
  Age: 7 Decade
  Sex: Male

DRUGS (6)
  1. BEAM [Concomitant]
     Active Substance: SODIUM FLUORIDE
     Indication: STEM CELL TRANSPLANT
     Dosage: UNK
  2. ALEMTUZUMAB [Suspect]
     Active Substance: ALEMTUZUMAB
     Indication: STEM CELL TRANSPLANT
  3. ALEMTUZUMAB [Suspect]
     Active Substance: ALEMTUZUMAB
     Indication: GRAFT VERSUS HOST DISEASE
     Dosage: UNK
     Route: 065
  4. TACROLIMUS. [Suspect]
     Active Substance: TACROLIMUS
     Indication: GRAFT VERSUS HOST DISEASE
     Dosage: UNK
     Route: 065
  5. TACROLIMUS. [Suspect]
     Active Substance: TACROLIMUS
     Indication: STEM CELL TRANSPLANT
  6. ALEMTUZUMAB [Suspect]
     Active Substance: ALEMTUZUMAB
     Indication: T-CELL PROLYMPHOCYTIC LEUKAEMIA

REACTIONS (6)
  - Chronic kidney disease [Unknown]
  - Off label use [Unknown]
  - Chronic graft versus host disease in skin [Unknown]
  - Cytomegalovirus infection reactivation [Unknown]
  - Transplant dysfunction [Unknown]
  - Anaemia [Unknown]
